FAERS Safety Report 13100541 (Version 1)
Quarter: 2017Q1

REPORT INFORMATION
  Report Type: Spontaneous
  Country: US (occurrence: US)
  Receive Date: 20170110
  Receipt Date: 20170110
  Transmission Date: 20170428
  Serious: Yes (Death)
  Sender: FDA-Public Use
  Company Number: US-UNITED THERAPEUTICS-UNT-2016-019589

PATIENT
  Age: 54 Year
  Sex: Female
  Weight: 49.89 kg

DRUGS (2)
  1. OPSUMIT [Concomitant]
     Active Substance: MACITENTAN
     Indication: PRODUCT USED FOR UNKNOWN INDICATION
  2. REMODULIN [Suspect]
     Active Substance: TREPROSTINIL
     Indication: PULMONARY HYPERTENSION
     Dosage: 0.202 ?G/KG, CONTINUING
     Route: 041
     Dates: start: 20120127

REACTIONS (1)
  - Death [Fatal]

NARRATIVE: CASE EVENT DATE: 20161225
